FAERS Safety Report 14477526 (Version 1)
Quarter: 2018Q1

REPORT INFORMATION
  Report Type: Report from Study
  Country: US (occurrence: US)
  Receive Date: 20180201
  Receipt Date: 20180201
  Transmission Date: 20180509
  Serious: No
  Sender: FDA-Public Use
  Company Number: US-EXELIXIS-CABO-17010780

PATIENT
  Sex: Male
  Weight: 107.94 kg

DRUGS (2)
  1. CENTRUM MEN [Concomitant]
  2. CABOMETYX [Suspect]
     Active Substance: CABOZANTINIB S-MALATE
     Indication: RENAL CELL CARCINOMA
     Dosage: 60 MG, QD
     Route: 048
     Dates: start: 201707

REACTIONS (4)
  - Diarrhoea [Recovering/Resolving]
  - Skin discolouration [Unknown]
  - Dysgeusia [Unknown]
  - Hair colour changes [Unknown]
